FAERS Safety Report 19621038 (Version 1)
Quarter: 2021Q3

REPORT INFORMATION
  Report Type: Spontaneous
  Country: US (occurrence: US)
  Receive Date: 20210728
  Receipt Date: 20210728
  Transmission Date: 20211014
  Serious: No
  Sender: FDA-Public Use
  Company Number: None

PATIENT
  Sex: Female

DRUGS (1)
  1. EUCRISA [Suspect]
     Active Substance: CRISABOROLE
     Indication: DERMATITIS
     Route: 061
     Dates: start: 20210703, end: 20210727

REACTIONS (5)
  - Swelling [None]
  - Rash erythematous [None]
  - Therapy cessation [None]
  - Blister [None]
  - Rash [None]
